FAERS Safety Report 5013756-4 (Version None)
Quarter: 2006Q2

REPORT INFORMATION
  Report Type: 
  Country: None (occurrence: None)
  Receive Date: 20060530
  Receipt Date: 20060519
  Transmission Date: 20061013
  Serious: Yes (Other)
  Sender: FDA-Public Use
  Company Number: US-JNJFOC-20060505005

PATIENT
  Sex: Male
  Weight: 104.33 kg

DRUGS (6)
  1. DURAGESIC-100 [Suspect]
     Route: 062
  2. NABUMETONE [Concomitant]
     Indication: BACK PAIN
     Route: 048
  3. GABITRIL [Concomitant]
     Route: 048
  4. NORTRIPTYLINE HCL [Concomitant]
     Route: 048
  5. CLONAZEPAM [Concomitant]
     Indication: ANXIETY
     Route: 048
  6. DIAZEPAM [Concomitant]
     Indication: MUSCLE SPASMS
     Route: 048

REACTIONS (1)
  - HYPERTHYROIDISM [None]
